FAERS Safety Report 5029654-6 (Version None)
Quarter: 2006Q2

REPORT INFORMATION
  Report Type: 
  Country: None (occurrence: None)
  Receive Date: 20060614
  Receipt Date: 20060524
  Transmission Date: 20061013
  Serious: Yes (Other)
  Sender: FDA-Public Use
  Company Number: US200605005366

PATIENT
  Age: 58 Year
  Sex: Female

DRUGS (10)
  1. CYMBALTA [Suspect]
     Indication: DEPRESSION
     Dosage: 90 MG, DAILY (1/D)
  2. HYDROCODONE [Concomitant]
  3. THIAZIDES [Concomitant]
  4. NORVASC [Concomitant]
  5. LISINOPRIL [Concomitant]
  6. LAMICTAL [Concomitant]
  7. ZETIA [Concomitant]
  8. PREMARIN [Concomitant]
  9. ZOLPIDEM TARTRATE [Concomitant]
  10. ATIVAN [Concomitant]

REACTIONS (1)
  - BLOOD PRESSURE SYSTOLIC INCREASED [None]
